FAERS Safety Report 23302854 (Version 1)
Quarter: 2023Q4

REPORT INFORMATION
  Report Type: Spontaneous
  Country: CN (occurrence: CN)
  Receive Date: 20231215
  Receipt Date: 20231215
  Transmission Date: 20240110
  Serious: Yes (Life-Threatening, Disabling)
  Sender: FDA-Public Use
  Company Number: CN-FreseniusKabi-FK202320121

PATIENT
  Age: 46 Year
  Sex: Male
  Weight: 45.0 kg

DRUGS (1)
  1. PROPOFOL [Suspect]
     Active Substance: PROPOFOL
     Indication: Anaesthesia
     Route: 042
     Dates: start: 20230830, end: 20230830

REACTIONS (2)
  - Shock [Recovered/Resolved with Sequelae]
  - Hypoxic-ischaemic encephalopathy [Recovered/Resolved with Sequelae]

NARRATIVE: CASE EVENT DATE: 20230830
